FAERS Safety Report 7708519-2 (Version None)
Quarter: 2011Q3

REPORT INFORMATION
  Report Type: 
  Country: None (occurrence: None)
  Receive Date: 20110825
  Receipt Date: 20110824
  Transmission Date: 20111222
  Serious: No
  Sender: FDA-Public Use
  Company Number: US-TEVA-297774USA

PATIENT
  Sex: Female
  Weight: 45.4 kg

DRUGS (3)
  1. METHOTREXATE [Concomitant]
  2. AZILECT [Suspect]
     Indication: PARKINSON'S DISEASE
     Dosage: 1 MILLIGRAM;
     Route: 048
     Dates: start: 20110301
  3. FOLIC ACID [Concomitant]

REACTIONS (1)
  - ALOPECIA [None]
